FAERS Safety Report 22092561 (Version 1)
Quarter: 2023Q1

REPORT INFORMATION
  Report Type: Spontaneous
  Country: GB (occurrence: FR)
  Receive Date: 20230314
  Receipt Date: 20230314
  Transmission Date: 20230418
  Serious: Yes (Hospitalization)
  Sender: FDA-Public Use
  Company Number: GB-MYLANLABS-2023M1026954

PATIENT
  Age: 62 Year
  Sex: Male

DRUGS (21)
  1. CLOZAPINE [Suspect]
     Active Substance: CLOZAPINE
     Indication: Psychotic disorder
     Dosage: 450 MILLIGRAM, QD
     Route: 065
  2. CLOZAPINE [Suspect]
     Active Substance: CLOZAPINE
     Indication: Delusion
  3. OLANZAPINE [Suspect]
     Active Substance: OLANZAPINE
     Indication: Psychotic disorder
     Dosage: 20 MILLIGRAM, QD
     Route: 065
  4. OLANZAPINE [Suspect]
     Active Substance: OLANZAPINE
     Indication: Delusion
  5. OLANZAPINE [Suspect]
     Active Substance: OLANZAPINE
     Indication: Antipsychotic therapy
  6. CYAMEMAZINE [Suspect]
     Active Substance: CYAMEMAZINE
     Indication: Psychotic disorder
     Dosage: UNK
     Route: 065
  7. CYAMEMAZINE [Suspect]
     Active Substance: CYAMEMAZINE
     Indication: Delusion
  8. CYAMEMAZINE [Suspect]
     Active Substance: CYAMEMAZINE
     Indication: Antipsychotic therapy
  9. LOXAPINE [Suspect]
     Active Substance: LOXAPINE
     Indication: Psychotic disorder
     Dosage: UNK
     Route: 065
  10. LOXAPINE [Suspect]
     Active Substance: LOXAPINE
     Indication: Delusion
  11. MIANSERIN [Concomitant]
     Active Substance: MIANSERIN
     Indication: Psychotic disorder
     Dosage: 10 MILLIGRAM, PM; AT NIGHT
     Route: 065
  12. MIANSERIN [Concomitant]
     Active Substance: MIANSERIN
     Indication: Delusion
  13. QUETIAPINE [Concomitant]
     Active Substance: QUETIAPINE
     Indication: Psychotic disorder
     Dosage: 200 MILLIGRAM, QD, SLOW RELEASE
     Route: 065
  14. QUETIAPINE [Concomitant]
     Active Substance: QUETIAPINE
     Indication: Delusion
  15. PROMETHAZINE [Concomitant]
     Active Substance: PROMETHAZINE HYDROCHLORIDE
     Indication: Agitation
     Dosage: 25 MILLIGRAM, PRN; (AS NECESSARY)
     Route: 065
  16. DOCUSATE SODIUM [Concomitant]
     Active Substance: DOCUSATE SODIUM
     Indication: Constipation
     Dosage: UNK
     Route: 065
  17. DOCUSATE SODIUM [Concomitant]
     Active Substance: DOCUSATE SODIUM
     Dosage: UNK (DOSE INCREASED)
     Route: 065
  18. LACTULOSE [Concomitant]
     Active Substance: LACTULOSE
     Indication: Constipation
     Dosage: UNK
     Route: 065
  19. LACTULOSE [Concomitant]
     Active Substance: LACTULOSE
     Dosage: UNK (DOSE INCREASED)
     Route: 065
  20. CITALOPRAM [Concomitant]
     Active Substance: CITALOPRAM HYDROBROMIDE
     Indication: Major depression
     Dosage: 10 MILLIGRAM, QD
     Route: 065
  21. CITALOPRAM [Concomitant]
     Active Substance: CITALOPRAM HYDROBROMIDE
     Dosage: 20 MILLIGRAM, QD
     Route: 065

REACTIONS (4)
  - Constipation [Recovered/Resolved]
  - Salivary hypersecretion [Recovered/Resolved]
  - Off label use [Recovered/Resolved]
  - Drug ineffective [Unknown]
